FAERS Safety Report 22397220 (Version 1)
Quarter: 2023Q2

REPORT INFORMATION
  Report Type: Spontaneous
  Country: IT (occurrence: IT)
  Receive Date: 20230602
  Receipt Date: 20230602
  Transmission Date: 20230722
  Serious: Yes (Other)
  Sender: FDA-Public Use
  Company Number: None

PATIENT
  Age: 24 Year
  Sex: Male
  Weight: 63 kg

DRUGS (1)
  1. MESALAMINE [Suspect]
     Active Substance: MESALAMINE
     Indication: Inflammatory bowel disease
     Dosage: 2400 MILLIGRAM DAILY; 800 MG 2 CP X 3/DAY
     Route: 065
     Dates: start: 20230209, end: 20230417

REACTIONS (1)
  - Myopericarditis [Recovered/Resolved]

NARRATIVE: CASE EVENT DATE: 20230317
